FAERS Safety Report 4340230-0 (Version None)
Quarter: 2004Q1

REPORT INFORMATION
  Report Type: 
  Country: None (occurrence: None)
  Receive Date: 20040329
  Receipt Date: 20031226
  Transmission Date: 20041129
  Serious: No
  Sender: FDA-Public Use
  Company Number: 03P-163-0245889-00

PATIENT
  Sex: Male

DRUGS (12)
  1. HUMIRA [Suspect]
     Indication: RHEUMATOID ARTHRITIS
     Dosage: SEE IMAGE
     Route: 058
     Dates: start: 20031013, end: 20031018
  2. HUMIRA [Suspect]
     Indication: RHEUMATOID ARTHRITIS
     Dosage: SEE IMAGE
     Route: 058
     Dates: start: 20031101
  3. METHOTREXATE [Concomitant]
  4. PREDNISONE [Concomitant]
  5. HYDROXYCHLOROQUINE PHOSPHATE [Concomitant]
  6. IBUPROFEN [Concomitant]
  7. SULFASALAZINE [Concomitant]
  8. FOLIC ACID [Concomitant]
  9. RANITIDINE HYDROCHLORIDE [Concomitant]
  10. DARVOCET [Concomitant]
  11. TOPROL EL [Concomitant]
  12. HYDROCHLOROTHIAZIDE [Concomitant]

REACTIONS (3)
  - HERPES ZOSTER [None]
  - INJECTION SITE BURNING [None]
  - WHITE BLOOD CELL DISORDER [None]
